FAERS Safety Report 6772342-6 (Version None)
Quarter: 2010Q2

REPORT INFORMATION
  Report Type: 
  Country: None (occurrence: None)
  Receive Date: 20100616
  Receipt Date: 20091002
  Transmission Date: 20101027
  Serious: No
  Sender: FDA-Public Use
  Company Number: US-ASTRAZENECA-2009SE11081

PATIENT
  Age: 63 Year
  Sex: Female
  Weight: 81.6 kg

DRUGS (2)
  1. PULMICORT FLEXHALER [Suspect]
     Indication: ASTHMA
     Dosage: ONE PUFF 180 MCG
     Route: 055
     Dates: start: 20090701
  2. PROVENTIL [Concomitant]
     Indication: ASTHMA

REACTIONS (2)
  - DYSPNOEA [None]
  - WHEEZING [None]
